FAERS Safety Report 5767308-9 (Version None)
Quarter: 2008Q2

REPORT INFORMATION
  Report Type: 
  Country: None (occurrence: None)
  Receive Date: 20080611
  Receipt Date: 20080611
  Transmission Date: 20081010
  Serious: Yes (Other)
  Sender: FDA-Public Use
  Company Number: None

PATIENT
  Age: 4 Year
  Sex: Female
  Weight: 16.1 kg

DRUGS (5)
  1. METHOTREXATE [Suspect]
     Indication: JUVENILE ARTHRITIS
     Dosage: 4 TABS ONCE WEEKLY PO
     Route: 048
     Dates: start: 20070205, end: 20080306
  2. METHOTREXATE [Suspect]
     Indication: JUVENILE ARTHRITIS
     Dosage: 4 TABS ONCE WEEKLY PO
     Route: 048
     Dates: start: 20080321
  3. ENBREL [Suspect]
     Indication: JUVENILE ARTHRITIS
     Dosage: 0.4ML ONCE WEEKLY SQ
     Route: 058
     Dates: start: 20070518, end: 20080313
  4. PREDFORTE EYE DROPS [Concomitant]
  5. MOTRIN [Concomitant]

REACTIONS (2)
  - CONTUSION [None]
  - THROMBOCYTOPENIA [None]
